FAERS Safety Report 15130387 (Version 5)
Quarter: 2019Q4

REPORT INFORMATION
  Report Type: Report from Study
  Country: TW (occurrence: TW)
  Receive Date: 20180711
  Receipt Date: 20191112
  Transmission Date: 20200122
  Serious: Yes (Hospitalization)
  Sender: FDA-Public Use
  Company Number: PHHY2016TW139632

PATIENT
  Age: 58 Year
  Sex: Male
  Weight: 63.2 kg

DRUGS (42)
  1. AMOXICILLIN AND CLAVULANATE POTASSIUM [Concomitant]
     Active Substance: AMOXICILLIN\CLAVULANATE POTASSIUM
     Indication: CELLULITIS
     Dosage: 1 G, UNK
     Route: 048
     Dates: start: 20160923, end: 20161007
  2. DEXLANSOPRAZOLE [Concomitant]
     Active Substance: DEXLANSOPRAZOLE
     Indication: GASTROOESOPHAGEAL REFLUX DISEASE
     Dosage: 60 MG, UNK
     Route: 048
     Dates: start: 20160817, end: 20161012
  3. ESOMEPRAZOLE MAGNESIUM. [Concomitant]
     Active Substance: ESOMEPRAZOLE MAGNESIUM
     Dosage: 40 MG, UNK
     Route: 048
     Dates: start: 20161012, end: 20161107
  4. MAGNESIUM OXIDE. [Concomitant]
     Active Substance: MAGNESIUM OXIDE
     Indication: GASTROOESOPHAGEAL REFLUX DISEASE
     Dosage: 500 MG, UNK
     Route: 048
     Dates: start: 20161011, end: 20161011
  5. RADI K [Concomitant]
     Indication: ANAEMIA
     Dosage: 595 MG, UNK
     Route: 048
     Dates: start: 20160817, end: 20160914
  6. SENNOSIDES A+B [Concomitant]
     Active Substance: SENNOSIDES A AND B
     Indication: PROPHYLAXIS
     Dosage: 25 MG, UNK
     Route: 048
     Dates: start: 20161025, end: 20161106
  7. SPIRONOLACTONE. [Concomitant]
     Active Substance: SPIRONOLACTONE
     Indication: ANAEMIA
     Dosage: 25 MG, UNK
     Route: 048
     Dates: start: 20160914, end: 20161012
  8. FUROSEMIDE. [Concomitant]
     Active Substance: FUROSEMIDE
     Indication: CHRONIC KIDNEY DISEASE
     Dosage: 10 MG, UNK
     Route: 042
     Dates: start: 20161021, end: 20161024
  9. ACETAMINOPHEN. [Concomitant]
     Active Substance: ACETAMINOPHEN
     Indication: GASTROOESOPHAGEAL REFLUX DISEASE
     Dosage: 500 MG, UNK
     Route: 048
     Dates: start: 20160921, end: 20160928
  10. DIPHENHYDRAMINE HCL [Concomitant]
     Active Substance: DIPHENHYDRAMINE HYDROCHLORIDE
     Dosage: 30 MG, UNK
     Route: 042
     Dates: start: 20161024, end: 20161024
  11. ESOMEPRAZOLE MAGNESIUM. [Concomitant]
     Active Substance: ESOMEPRAZOLE MAGNESIUM
     Indication: GASTROOESOPHAGEAL REFLUX DISEASE
     Dosage: 40 MG, UNK
     Route: 048
     Dates: start: 20161008, end: 20161011
  12. ESOMEPRAZOLE MAGNESIUM. [Concomitant]
     Active Substance: ESOMEPRAZOLE MAGNESIUM
     Dosage: 40 MG, UNK
     Route: 048
     Dates: start: 20161107, end: 20161112
  13. FEBUXOSTAT. [Concomitant]
     Active Substance: FEBUXOSTAT
     Indication: CHRONIC KIDNEY DISEASE
     Dosage: 160 MG, UNK
     Route: 048
     Dates: start: 20161006, end: 20161006
  14. FUROSEMIDE. [Concomitant]
     Active Substance: FUROSEMIDE
     Dosage: 20 MG, UNK
     Route: 048
     Dates: start: 20161024, end: 20161107
  15. PREDNISOLONE. [Concomitant]
     Active Substance: PREDNISOLONE
     Indication: MYELODYSPLASTIC SYNDROME
     Dosage: 5 MG, UNK
     Route: 048
     Dates: start: 20160923, end: 20161021
  16. SENNAPUR [Concomitant]
     Indication: PROPHYLAXIS
     Dosage: 25 MG, UNK
     Route: 048
     Dates: start: 20161107, end: 20161130
  17. TRAMADOL + ACETAMINOFEN [Concomitant]
     Active Substance: ACETAMINOPHEN\TRAMADOL
     Indication: CELLULITIS
     Dosage: 1 DF, UNK
     Route: 048
     Dates: start: 20160930, end: 20161014
  18. EXJADE [Suspect]
     Active Substance: DEFERASIROX
     Indication: IRON OVERLOAD
     Dosage: 250 MG, UNK
     Route: 048
     Dates: start: 20160930, end: 20161006
  19. BUMETANIDE. [Concomitant]
     Active Substance: BUMETANIDE
     Indication: ANAEMIA
     Dosage: 1 MG, UNK
     Route: 048
     Dates: start: 20160923, end: 20161007
  20. DANAZOL. [Concomitant]
     Active Substance: DANAZOL
     Indication: MYELODYSPLASTIC SYNDROME
     Dosage: 200 MG, UNK
     Route: 048
     Dates: start: 20160720, end: 20161012
  21. FEBUXOSTAT. [Concomitant]
     Active Substance: FEBUXOSTAT
     Dosage: 80 MG, UNK
     Route: 048
     Dates: start: 20161007, end: 20161112
  22. PREDONINE [Concomitant]
     Active Substance: PREDNISOLONE
     Indication: MYELODYSPLASTIC SYNDROME
     Dosage: 5 MG, UNK
     Route: 048
     Dates: start: 20160720, end: 20160922
  23. BUTYLSCOPOLAMINE BROMIDE [Concomitant]
     Active Substance: BUTYLSCOPOLAMINE BROMIDE
     Indication: GASTROOESOPHAGEAL REFLUX DISEASE
     Dosage: 10 MG, UNK
     Route: 030
     Dates: start: 20160901, end: 20160901
  24. DIPHENHYDRAMINE HCL [Concomitant]
     Active Substance: DIPHENHYDRAMINE HYDROCHLORIDE
     Dosage: 30 MG, UNK
     Route: 042
     Dates: start: 20160914, end: 20160915
  25. DIPHENHYDRAMINE HCL [Concomitant]
     Active Substance: DIPHENHYDRAMINE HYDROCHLORIDE
     Dosage: 30 MG, UNK
     Route: 042
     Dates: start: 20161027, end: 20161031
  26. FUROSEMIDE. [Concomitant]
     Active Substance: FUROSEMIDE
     Dosage: 10 MG, UNK
     Route: 042
     Dates: start: 20161027, end: 20161027
  27. DIPHENHYDRAMINE HCL [Concomitant]
     Active Substance: DIPHENHYDRAMINE HYDROCHLORIDE
     Indication: PROPHYLAXIS
     Dosage: 30 MG, UNK
     Route: 042
     Dates: start: 20161006, end: 20161006
  28. DIPHENHYDRAMINE HCL [Concomitant]
     Active Substance: DIPHENHYDRAMINE HYDROCHLORIDE
     Dosage: 30 MG, UNK
     Route: 042
     Dates: start: 20161111, end: 20161111
  29. DIPHENHYDRAMINE HCL [Concomitant]
     Active Substance: DIPHENHYDRAMINE HYDROCHLORIDE
     Dosage: 30 MG, UNK
     Route: 042
     Dates: start: 20161012, end: 20161012
  30. DIPHENHYDRAMINE HCL [Concomitant]
     Active Substance: DIPHENHYDRAMINE HYDROCHLORIDE
     Dosage: 30 MG, UNK
     Route: 042
     Dates: start: 20160817, end: 20160818
  31. DIPHENHYDRAMINE HCL [Concomitant]
     Active Substance: DIPHENHYDRAMINE HYDROCHLORIDE
     Dosage: 30 MG, UNK
     Route: 042
     Dates: start: 20161121
  32. DIPHENHYDRAMINE HCL [Concomitant]
     Active Substance: DIPHENHYDRAMINE HYDROCHLORIDE
     Dosage: 30 MG, UNK
     Route: 042
     Dates: start: 20161020, end: 20161020
  33. DIPHENHYDRAMINE HCL [Concomitant]
     Active Substance: DIPHENHYDRAMINE HYDROCHLORIDE
     Dosage: 30 MG, UNK
     Route: 042
     Dates: start: 20160930, end: 20160930
  34. FEBUXOSTAT. [Concomitant]
     Active Substance: FEBUXOSTAT
     Dosage: 40 MG, UNK
     Route: 048
     Dates: start: 20161117, end: 20161130
  35. FUROSEMIDE. [Concomitant]
     Active Substance: FUROSEMIDE
     Dosage: 20 MG, UNK
     Route: 048
     Dates: start: 20161107, end: 20161130
  36. PLATYCODON GRANDIFLORUM [Concomitant]
     Active Substance: PLATYCODON GRANDIFLORUS WHOLE
     Indication: GASTROOESOPHAGEAL REFLUX DISEASE
     Dosage: 10 ML, UNK
     Route: 048
     Dates: start: 20160921, end: 20160928
  37. BENZBROMARONE [Concomitant]
     Active Substance: BENZBROMARONE
     Indication: ANAEMIA
     Dosage: 50 MG, UNK
     Route: 048
     Dates: start: 20160817, end: 20161012
  38. FUROSEMIDE. [Concomitant]
     Active Substance: FUROSEMIDE
     Indication: ANAEMIA
     Dosage: 40 MG, UNK
     Route: 048
     Dates: start: 20161014, end: 20161020
  39. SPIRONOLACTONE. [Concomitant]
     Active Substance: SPIRONOLACTONE
     Indication: CHRONIC KIDNEY DISEASE
     Dosage: 25 MG, UNK
     Route: 048
     Dates: start: 20161017, end: 20161020
  40. DEXTROMETHORPHAN HYDROBROMIDE. [Concomitant]
     Active Substance: DEXTROMETHORPHAN HYDROBROMIDE
     Indication: GASTROOESOPHAGEAL REFLUX DISEASE
     Dosage: 15 MG, UNK
     Route: 048
     Dates: start: 20160921, end: 20160928
  41. DIPHENHYDRAMINE HCL [Concomitant]
     Active Substance: DIPHENHYDRAMINE HYDROCHLORIDE
     Dosage: 30 MG, UNK
     Route: 042
     Dates: start: 20161117, end: 20161117
  42. FUROSEMIDE. [Concomitant]
     Active Substance: FUROSEMIDE
     Indication: CHRONIC KIDNEY DISEASE
     Dosage: 40 MG, UNK
     Route: 048
     Dates: start: 20160817, end: 20161012

REACTIONS (13)
  - Product use issue [Unknown]
  - Alanine aminotransferase increased [Unknown]
  - Pyrexia [Recovered/Resolved]
  - Peripheral nerve lesion [Not Recovered/Not Resolved]
  - Bone pain [Not Recovered/Not Resolved]
  - Bacteraemia [Recovered/Resolved]
  - Salmonellosis [Recovering/Resolving]
  - Pyrexia [Recovered/Resolved]
  - Pain [Recovered/Resolved]
  - Jaundice [Not Recovered/Not Resolved]
  - Aspartate aminotransferase increased [Unknown]
  - Tenderness [Recovered/Resolved]
  - Abscess limb [Recovered/Resolved]

NARRATIVE: CASE EVENT DATE: 20161005
